FAERS Safety Report 10657614 (Version 2)
Quarter: 2015Q1

REPORT INFORMATION
  Report Type: Spontaneous
  Country: US (occurrence: US)
  Receive Date: 20141217
  Receipt Date: 20150129
  Transmission Date: 20150720
  Serious: No
  Sender: FDA-Public Use
  Company Number: US-PFIZER INC-2014346090

PATIENT
  Age: 62 Year
  Sex: Female

DRUGS (2)
  1. LYRICA [Suspect]
     Active Substance: PREGABALIN
     Indication: HEADACHE
     Dosage: 20 MG, 2X/DAY
     Dates: start: 201411
  2. LYRICA [Suspect]
     Active Substance: PREGABALIN
     Indication: FACIAL PAIN
     Dosage: 25 MG, 2X/DAY

REACTIONS (3)
  - Nausea [Recovered/Resolved]
  - Tinnitus [Not Recovered/Not Resolved]
  - Decreased appetite [Recovered/Resolved]
